FAERS Safety Report 23395301 (Version 2)
Quarter: 2024Q3

REPORT INFORMATION
  Report Type: Spontaneous
  Country: CA (occurrence: CA)
  Receive Date: 20240112
  Receipt Date: 20240807
  Transmission Date: 20241016
  Serious: Yes (Other)
  Sender: AUROBINDO
  Company Number: CA-AUROBINDO-AUR-APL-2023-032451

PATIENT
  Age: 17 Year
  Sex: Male

DRUGS (11)
  1. ATOMOXETINE [Suspect]
     Active Substance: ATOMOXETINE HYDROCHLORIDE
     Indication: Attention deficit hyperactivity disorder
     Dosage: 60 MILLIGRAM, ONCE A DAY (1 MG/KG/DAY) AND
     Route: 065
  2. MODAFINIL [Suspect]
     Active Substance: MODAFINIL
     Indication: Attention deficit hyperactivity disorder
     Dosage: 100 MILLIGRAM, ONCE A DAY,1 EVERY 24 HOURS
     Route: 065
  3. BUPROPION [Suspect]
     Active Substance: BUPROPION
     Indication: Attention deficit hyperactivity disorder
     Dosage: 300 MILLIGRAM, ONCE A DAY
     Route: 065
  4. LISDEXAMFETAMINE [Suspect]
     Active Substance: LISDEXAMFETAMINE
     Indication: Attention deficit hyperactivity disorder
     Dosage: UNK
     Route: 065
  5. GUANFACINE [Suspect]
     Active Substance: GUANFACINE
     Indication: Attention deficit hyperactivity disorder
     Dosage: 3 MILLIGRAM, ONCE A DAY,1 EVERY 24 HOUR
     Route: 065
  6. METHYLPHENIDATE [Suspect]
     Active Substance: METHYLPHENIDATE
     Indication: Attention deficit hyperactivity disorder
     Dosage: UNK
     Route: 065
  7. METHYLPHENIDATE [Suspect]
     Active Substance: METHYLPHENIDATE
     Dosage: 72 MILLIGRAM, ONCE A DAY
     Route: 048
  8. DEXTROAMPHET SACCHARAT, AMPHET ASPARTATE, DEXTROAMPHET SULFATE AND AMP [Suspect]
     Active Substance: AMPHETAMINE ASPARTATE\AMPHETAMINE SULFATE\DEXTROAMPHETAMINE SACCHARATE\DEXTROAMPHETAMINE SULFATE
     Indication: Attention deficit hyperactivity disorder
     Dosage: UNK
     Route: 065
  9. DEXTROAMPHETAMINE [Suspect]
     Active Substance: DEXTROAMPHETAMINE
     Indication: Attention deficit hyperactivity disorder
     Dosage: UNK
     Route: 065
  10. VYVANSE [Suspect]
     Active Substance: LISDEXAMFETAMINE DIMESYLATE
     Indication: Attention deficit hyperactivity disorder
     Dosage: UNK
     Route: 065
  11. AMPHETAMINE [Concomitant]
     Active Substance: AMPHETAMINE
     Indication: Attention deficit hyperactivity disorder
     Dosage: UNK
     Route: 065

REACTIONS (6)
  - Anxiety [Unknown]
  - Nausea [Unknown]
  - Insomnia [Unknown]
  - Drug tolerance [Unknown]
  - Drug ineffective [Unknown]
  - Off label use [Unknown]
